FAERS Safety Report 12808137 (Version 2)
Quarter: 2016Q4

REPORT INFORMATION
  Report Type: Spontaneous
  Country: US (occurrence: US)
  Receive Date: 20161004
  Receipt Date: 20161103
  Transmission Date: 20170207
  Serious: Yes (Hospitalization)
  Sender: FDA-Public Use
  Company Number: US-PFIZER INC-2016462474

PATIENT
  Age: 59 Year
  Sex: Male

DRUGS (13)
  1. CHANTIX [Suspect]
     Active Substance: VARENICLINE TARTRATE
     Dosage: UNK
     Dates: start: 2011
  2. VENTOLIN HFA [Concomitant]
     Active Substance: ALBUTEROL SULFATE
     Indication: RESPIRATORY DISORDER
     Dosage: 2 DF, 4X/DAY (INHALE 2 PUFFS)
     Route: 055
     Dates: start: 20150618
  3. ZYRTEC [Concomitant]
     Active Substance: CETIRIZINE HYDROCHLORIDE
     Dosage: 10 MG, AS NEEDED, (DAILY)
     Route: 048
     Dates: start: 20150618
  4. OXYGEN. [Concomitant]
     Active Substance: OXYGEN
     Dosage: 2 L PER MINUTE
     Dates: start: 20151019
  5. ADVAIR HFA [Concomitant]
     Active Substance: FLUTICASONE PROPIONATE\SALMETEROL XINAFOATE
     Indication: RESPIRATORY DISORDER
     Dosage: 1 DF, 2X/DAY (FLUTICASONE PROPIONATE: 250 MCG/SALMETEROL XINAFOATE: 50MCG)
     Route: 055
     Dates: start: 20131021
  6. HYDROXYZINE HCL [Concomitant]
     Active Substance: HYDROXYZINE HYDROCHLORIDE
     Dosage: 25 MG, 1X/DAY, (AT BEDTIME)
     Route: 048
     Dates: start: 20150618
  7. CHANTIX [Suspect]
     Active Substance: VARENICLINE TARTRATE
     Dosage: 1 MONTH DOSE PACK AS PER DIRECTED
  8. ALBUTEROL SULFATE. [Concomitant]
     Active Substance: ALBUTEROL SULFATE
     Indication: CHRONIC OBSTRUCTIVE PULMONARY DISEASE
     Dosage: 1 DF, AS NEEDED, (IN NEBULIZER MACHINE QID PRN)
     Route: 055
     Dates: start: 20131021
  9. PREVNAR 13 [Concomitant]
     Active Substance: PNEUMOCOCCAL 13-VALENT CONJUGATE VACCINE
     Dosage: 1 DF, SINGLE (0.5 CC IM X1)
     Route: 030
  10. IPRATROPIUM BROMIDE. [Concomitant]
     Active Substance: IPRATROPIUM BROMIDE
     Indication: RESPIRATORY DISORDER
     Dosage: 1 DF, AS NEEDED (IN NEBULIZER MACHINE QID PRN)
     Route: 055
     Dates: start: 20131021
  11. LORATADINE. [Concomitant]
     Active Substance: LORATADINE
     Dosage: 10 MG, DAILY
     Route: 048
     Dates: start: 20160916
  12. SPIRIVA [Concomitant]
     Active Substance: TIOTROPIUM BROMIDE MONOHYDRATE
     Indication: RESPIRATORY DISORDER
     Dosage: 18 UG, DAILY, (INHALING THE CONTENTS OF THE CAPSULE OF THE CAPSULE USING THE HANDIHALER DEVICE)
     Route: 048
     Dates: start: 20131021
  13. SYMBICORT [Concomitant]
     Active Substance: BUDESONIDE\FORMOTEROL FUMARATE DIHYDRATE
     Indication: RESPIRATORY DISORDER
     Dosage: 2 DF, 2X/DAY (BUDESONIDE: 160 MCG/ FORMOTEROL FUMARATE: 4.5MCG)
     Route: 055
     Dates: start: 20160520

REACTIONS (1)
  - Intestinal obstruction [Unknown]
